FAERS Safety Report 19718450 (Version 7)
Quarter: 2021Q3

REPORT INFORMATION
  Report Type: Report from Study
  Country: AU (occurrence: AU)
  Receive Date: 20210818
  Receipt Date: 20210921
  Transmission Date: 20211014
  Serious: Yes (Hospitalization)
  Sender: FDA-Public Use
  Company Number: AU-EISAI MEDICAL RESEARCH-EC-2021-097923

PATIENT
  Age: 54 Year
  Sex: Male
  Weight: 81.3 kg

DRUGS (26)
  1. NORVASC [Concomitant]
     Active Substance: AMLODIPINE BESYLATE
     Dates: start: 201501, end: 20210801
  2. NATRILIX [INDAPAMIDE] [Concomitant]
     Active Substance: INDAPAMIDE
     Dates: start: 201501
  3. TARGIN [Concomitant]
     Active Substance: NALOXONE HYDROCHLORIDE\OXYCODONE HYDROCHLORIDE
     Dates: start: 20210624
  4. VITA MEGA B [Concomitant]
     Dates: start: 201801
  5. LENVATINIB [Suspect]
     Active Substance: LENVATINIB
     Dosage: STARTING DOSE 20 MILLIGRAM (FLUCTUATED DOSE)
     Route: 048
     Dates: start: 20210716
  6. LEVOTHYROXINE SODIUM. [Concomitant]
     Active Substance: LEVOTHYROXINE SODIUM
     Dates: start: 201801
  7. TARGIN [Concomitant]
     Active Substance: NALOXONE HYDROCHLORIDE\OXYCODONE HYDROCHLORIDE
     Dates: start: 201901, end: 20210623
  8. PRAZOSIN. [Concomitant]
     Active Substance: PRAZOSIN
     Dates: start: 20210625, end: 20210707
  9. PEMBROLIZUMAB. [Suspect]
     Active Substance: PEMBROLIZUMAB
     Route: 042
     Dates: start: 20210730
  10. SPAN?K [Concomitant]
     Active Substance: POTASSIUM CHLORIDE
     Dates: start: 201801
  11. ESOMEPRAZOLE. [Concomitant]
     Active Substance: ESOMEPRAZOLE MAGNESIUM
     Dates: start: 202010
  12. CALCIUM CARBONATE. [Concomitant]
     Active Substance: CALCIUM CARBONATE
     Dates: start: 201801
  13. TARGIN [Concomitant]
     Active Substance: NALOXONE HYDROCHLORIDE\OXYCODONE HYDROCHLORIDE
     Dates: start: 20210701, end: 20210707
  14. LYRICA [Concomitant]
     Active Substance: PREGABALIN
     Dates: start: 20210624, end: 20210630
  15. ENDONE [Concomitant]
     Active Substance: OXYCODONE HYDROCHLORIDE
     Dates: start: 20210706, end: 20210710
  16. LENVATINIB [Suspect]
     Active Substance: LENVATINIB
     Indication: RENAL CELL CARCINOMA
     Route: 048
     Dates: start: 20210618, end: 20210712
  17. PERINDOPRIL ARGININE [Concomitant]
     Active Substance: PERINDOPRIL ARGININE
     Dates: start: 201501
  18. PRAZOSIN. [Concomitant]
     Active Substance: PRAZOSIN
     Dates: start: 20210618, end: 20210624
  19. COLOXYL WITH SENNA [DOCUSATE SODIUM;SENNOSIDE A+B] [Concomitant]
     Active Substance: DOCUSATE SODIUM\SENNOSIDES A AND B
     Dates: start: 20210629, end: 20210721
  20. PEMBROLIZUMAB. [Suspect]
     Active Substance: PEMBROLIZUMAB
     Indication: RENAL CELL CARCINOMA
     Route: 042
     Dates: start: 20210618, end: 20210618
  21. MAXOLON [Concomitant]
     Active Substance: METOCLOPRAMIDE HYDROCHLORIDE
     Dates: start: 20210707
  22. CENTRUM A TO ZINC [Concomitant]
     Active Substance: MINERALS\VITAMINS
     Dates: start: 201801
  23. MAGMIN [Concomitant]
     Active Substance: MAGNESIUM ASPARTATE
     Dates: start: 201801
  24. NATRILIX [INDAPAMIDE] [Concomitant]
     Active Substance: INDAPAMIDE
     Dates: start: 20210811
  25. LYRICA [Concomitant]
     Active Substance: PREGABALIN
     Dates: start: 201901, end: 20210623
  26. PANADOL [Concomitant]
     Active Substance: ACETAMINOPHEN
     Dates: start: 20210706

REACTIONS (1)
  - Hypertension [Not Recovered/Not Resolved]

NARRATIVE: CASE EVENT DATE: 20210708
